FAERS Safety Report 4717171-X (Version None)
Quarter: 2005Q3

REPORT INFORMATION
  Report Type: 
  Country: None (occurrence: None)
  Receive Date: 20050715
  Receipt Date: 20050704
  Transmission Date: 20060218
  Serious: Yes (Hospitalization, Other)
  Sender: FDA-Public Use
  Company Number: 2005-DE-02563GD

PATIENT
  Age: 37 Year
  Sex: Male

DRUGS (14)
  1. TRAZODONE (TRAZODONE HYDROCHLORIDE) (NR) [Suspect]
     Dosage: 150 MG
  2. HYDROMORPHONE (HYDROMORPHONE (NR) (HYDROMORPHONE) [Suspect]
     Indication: PAIN
     Dosage: 750 MG (SEE TEXT, EVERY 4 HOURS), SC
     Route: 058
  3. CITALOPRAM (CITALOPRAM HYDROBROMIDE) (NR) [Suspect]
     Dosage: 40 MG (NR, ONCE DAILY)
  4. LINEZOLID (LINEZOLID) (NR) [Suspect]
     Indication: CELLULITIS
     Dosage: 1200 MG (NR, TWICE DAILY) PO
     Route: 048
  5. LINEZOLID (LINEZOLID) (NR) [Suspect]
     Indication: PANNICULITIS
     Dosage: 1200 MG (NR, TWICE DAILY) PO
     Route: 048
  6. OLANZAPINE [Suspect]
     Dosage: 2.5 MG (NR, ONCE DAILY)
  7. ONDANSETRON [Suspect]
     Indication: NAUSEA
     Dosage: 8 MG AS NEEDED (NR)
  8. CLONAZEPAM [Concomitant]
  9. PANTOPRAZOLE SODIUM [Concomitant]
  10. METFORMIN HCL [Concomitant]
  11. PERINDOPRIL (PERINDOPRIL) [Concomitant]
  12. FUROSEMIDE (FUROSEMIDE) [Concomitant]
  13. SENNA (SENNA ALEXANDRINA) [Suspect]
  14. SODIUM DOCUSATE (DOCUSATE SODIUM) [Concomitant]

REACTIONS (11)
  - ANXIETY [None]
  - BLOOD PRESSURE INCREASED [None]
  - DRUG TOXICITY [None]
  - HEART RATE INCREASED [None]
  - HOT FLUSH [None]
  - HYPERHIDROSIS [None]
  - HYPOAESTHESIA ORAL [None]
  - PALPITATIONS [None]
  - PANIC ATTACK [None]
  - SEROTONIN SYNDROME [None]
  - TREMOR [None]
